FAERS Safety Report 5801384-X (Version None)
Quarter: 2008Q2

REPORT INFORMATION
  Report Type: 
  Country: None (occurrence: None)
  Receive Date: 20080626
  Receipt Date: 20070710
  Transmission Date: 20081010
  Serious: Yes (Hospitalization)
  Sender: FDA-Public Use
  Company Number: 506261

PATIENT
  Age: 79 Year
  Sex: Male
  Weight: 63.5 kg

DRUGS (3)
  1. XELODA [Suspect]
     Indication: COLORECTAL CANCER
     Dosage: 3500 MG DAILY
     Dates: end: 20070706
  2. SYNTHROID [Concomitant]
  3. 1 CONCOMITANT DRUG (GENERIC UNKNOWN) [Concomitant]

REACTIONS (5)
  - DIARRHOEA [None]
  - INFECTION [None]
  - PYREXIA [None]
  - SKIN EXFOLIATION [None]
  - VOMITING [None]
